FAERS Safety Report 22140012 (Version 4)
Quarter: 2023Q4

REPORT INFORMATION
  Report Type: Other
  Country: DE (occurrence: None)
  Receive Date: 20230327
  Receipt Date: 20231127
  Transmission Date: 20240110
  Serious: Yes (Other)
  Sender: FDA-Public Use
  Company Number: DE-ROCHE-2572788

PATIENT
  Age: 51 Year
  Sex: Female

DRUGS (18)
  1. OCREVUS [Suspect]
     Active Substance: OCRELIZUMAB
     Indication: Relapsing-remitting multiple sclerosis
     Dosage: 600 MG FREQUENCY: 182 DAYS
     Route: 042
     Dates: start: 20200220
  2. OCREVUS [Suspect]
     Active Substance: OCRELIZUMAB
     Route: 042
  3. OCREVUS [Suspect]
     Active Substance: OCRELIZUMAB
     Route: 042
     Dates: start: 202102
  4. OCREVUS [Suspect]
     Active Substance: OCRELIZUMAB
     Route: 042
     Dates: start: 20210225
  5. OCREVUS [Suspect]
     Active Substance: OCRELIZUMAB
     Route: 042
     Dates: start: 20210902
  6. OCREVUS [Suspect]
     Active Substance: OCRELIZUMAB
     Route: 042
  7. OCREVUS [Suspect]
     Active Substance: OCRELIZUMAB
     Route: 042
  8. COMIRNATY (TOZINAMERAN) [Suspect]
     Active Substance: TOZINAMERAN
     Indication: COVID-19
     Dosage: SHE RECEIVED NEXT DOSES ON 20/FEB/2022, 3RD DOSE ON EARLY AUGUST 2021, 4TH DOSE ON 11/JAN/2022, 5TH
     Route: 065
     Dates: start: 20210402, end: 20210402
  9. COMIRNATY (TOZINAMERAN) [Suspect]
     Active Substance: TOZINAMERAN
     Route: 065
     Dates: start: 20210507, end: 20210507
  10. INSULIN NOS [Concomitant]
     Active Substance: INSULIN NOS
  11. LEVOTHYROXINE [Concomitant]
     Active Substance: LEVOTHYROXINE
  12. NABIXIMOLS [Concomitant]
     Active Substance: NABIXIMOLS
     Dosage: UP TO 8 PUFFS A DAY
  13. GABAPENTIN [Concomitant]
     Active Substance: GABAPENTIN
  14. PIRACETAM [Concomitant]
     Active Substance: PIRACETAM
  15. NOVALGIN (METAMIZOLE SODIUM) [Concomitant]
     Active Substance: METAMIZOLE SODIUM
     Dosage: UP TO 8 TIMES DAILY
  16. CHOLECALCIFEROL [Concomitant]
     Active Substance: CHOLECALCIFEROL
  17. LEVETIRACETAM [Concomitant]
     Active Substance: LEVETIRACETAM
  18. PALEXIA [Concomitant]
     Active Substance: TAPENTADOL HYDROCHLORIDE
     Dosage: RETARD 0-1-2 SLOW-RELEASE

REACTIONS (22)
  - Hemiparesis [Recovered/Resolved]
  - Fatigue [Not Recovered/Not Resolved]
  - Blood pressure decreased [Recovered/Resolved]
  - Arthralgia [Recovered/Resolved]
  - Peripheral swelling [Not Recovered/Not Resolved]
  - Blood glucose fluctuation [Recovered/Resolved]
  - Muscle spasticity [Recovered/Resolved]
  - Drug ineffective [Unknown]
  - Dysaesthesia [Recovered/Resolved]
  - Disturbance in attention [Recovered/Resolved]
  - Product administration error [Unknown]
  - Gait disturbance [Recovered/Resolved]
  - SARS-CoV-2 antibody test negative [Not Recovered/Not Resolved]
  - Vision blurred [Recovered/Resolved]
  - Pain in extremity [Recovered/Resolved]
  - Liver function test increased [Recovering/Resolving]
  - White blood cell count increased [Recovering/Resolving]
  - Platelet count increased [Recovering/Resolving]
  - Blood creatinine increased [Recovering/Resolving]
  - Blood viscosity increased [Not Recovered/Not Resolved]
  - COVID-19 [Recovered/Resolved]
  - Muscular weakness [Not Recovered/Not Resolved]

NARRATIVE: CASE EVENT DATE: 20200220
